FAERS Safety Report 8324484 (Version 2)
Quarter: 2013Q2

REPORT INFORMATION
  Report Type: Spontaneous
  Country: US (occurrence: US)
  Receive Date: 20120106
  Receipt Date: 20130409
  Transmission Date: 20140414
  Serious: Yes (Other)
  Sender: FDA-Public Use
  Company Number: US-PFIZER INC-2012002365

PATIENT
  Age: 46 Year
  Sex: Female
  Weight: 60 kg

DRUGS (7)
  1. LYRICA [Suspect]
     Indication: PAIN
     Dosage: 50 MG, 3X/DAY
  2. LYRICA [Suspect]
     Indication: NEUROPATHY PERIPHERAL
  3. LYRICA [Suspect]
     Indication: FIBROMYALGIA
  4. HYDROCODONE [Concomitant]
     Indication: PANCREATITIS
     Dosage: UNK
  5. CRESTOR [Concomitant]
     Indication: BLOOD CHOLESTEROL ABNORMAL
     Dosage: 20 MG, 1X/DAY
  6. NORTRIPTYLINE [Concomitant]
     Dosage: UNK
  7. VITAMIN D [Concomitant]
     Dosage: UNK, 1X/DAY

REACTIONS (4)
  - Activities of daily living impaired [Not Recovered/Not Resolved]
  - Pain [Unknown]
  - Pain in extremity [Unknown]
  - Arthralgia [Unknown]
